FAERS Safety Report 9403255 (Version 1)
Quarter: 2013Q3

REPORT INFORMATION
  Report Type: Spontaneous
  Country: JP (occurrence: None)
  Receive Date: 20130712
  Receipt Date: 20130712
  Transmission Date: 20140515
  Serious: Yes (Death)
  Sender: FDA-Public Use
  Company Number: DSJ-2013-15419

PATIENT
  Age: 76 Year
  Sex: Male

DRUGS (6)
  1. OLMETEC [Suspect]
     Indication: ESSENTIAL HYPERTENSION
     Route: 048
     Dates: start: 20050722, end: 20121127
  2. AMLODIN (AMLODIPINE BESILATE)(AMLODIPINE BESILATE) [Concomitant]
  3. SOLANAX (ALPRAZOLAM )(ALPRAZOLAM) [Concomitant]
  4. GASTER D (FAMOTIDINE)(FAMOTIDINE) [Concomitant]
  5. RYTHMODAN (DISOPYRAMIDE)(DISOPYRAMIDE) [Concomitant]
  6. MOHRUS TAPE (KETOPROFEN)(POULTICE OR PATCH)(KETOPROFEN) [Concomitant]

REACTIONS (4)
  - Cardio-respiratory arrest [None]
  - Palpitations [None]
  - Ventricular extrasystoles [None]
  - Ventricular fibrillation [None]
